FAERS Safety Report 9206673 (Version 2)
Quarter: 2014Q1

REPORT INFORMATION
  Report Type: Spontaneous
  Country: US (occurrence: US)
  Receive Date: 20130403
  Receipt Date: 20140107
  Transmission Date: 20141002
  Serious: Yes (Hospitalization)
  Sender: FDA-Public Use
  Company Number: US-BAYER-2013-041136

PATIENT
  Age: 25 Year
  Sex: Female

DRUGS (7)
  1. YAZ [Suspect]
     Indication: ACNE
  2. ALEVE LIQUID GELS [Concomitant]
     Dosage: 1 [TIME] WEEK
     Route: 048
     Dates: start: 20050603
  3. ZOLOFT [Concomitant]
     Dosage: UNK
     Route: 048
     Dates: start: 20050324
  4. ZYPREXA [Concomitant]
     Dosage: 10 MG, UNK
     Route: 048
     Dates: start: 20050324, end: 20050614
  5. DARVOCET [Concomitant]
  6. PHENERGAN [Concomitant]
  7. KLONOPIN [Concomitant]

REACTIONS (4)
  - Cholecystitis [None]
  - Injury [None]
  - Pain [None]
  - Pain [None]
